FAERS Safety Report 8019687-X (Version None)
Quarter: 2012Q1

REPORT INFORMATION
  Report Type: 
  Country: None (occurrence: None)
  Receive Date: 20120103
  Receipt Date: 20111227
  Transmission Date: 20120608
  Serious: Yes (Other)
  Sender: FDA-Public Use
  Company Number: BR-GLAXOSMITHKLINE-A0944685A

PATIENT
  Age: 52 Year
  Sex: Male
  Weight: 87 kg

DRUGS (1)
  1. ALKERAN [Suspect]
     Indication: ILL-DEFINED DISORDER
     Route: 065
     Dates: start: 20000101

REACTIONS (4)
  - GASTROENTERITIS EOSINOPHILIC [None]
  - ASTHMA [None]
  - ACCIDENTAL EXPOSURE [None]
  - PULMONARY FIBROSIS [None]
